FAERS Safety Report 5644229-3 (Version None)
Quarter: 2008Q1

REPORT INFORMATION
  Report Type: 
  Country: None (occurrence: None)
  Receive Date: 20080227
  Receipt Date: 20080227
  Transmission Date: 20080703
  Serious: Yes (Other)
  Sender: FDA-Public Use
  Company Number: None

PATIENT
  Age: 39 Year
  Sex: Female
  Weight: 104.3273 kg

DRUGS (2)
  1. PAXIL CR [Suspect]
     Indication: ERYTHEMA
     Dosage: 25 MG 1 DAILY PO
     Route: 048
     Dates: start: 20080210, end: 20080217
  2. PAXIL CR [Suspect]
     Indication: ERYTHEMA
     Dosage: 12.5 MG 1 DAILY PO
     Route: 048
     Dates: start: 20080218, end: 20080225

REACTIONS (6)
  - ADVERSE DRUG REACTION [None]
  - DRUG WITHDRAWAL SYNDROME [None]
  - INFLUENZA LIKE ILLNESS [None]
  - PANIC ATTACK [None]
  - PARANOIA [None]
  - WEIGHT INCREASED [None]
